FAERS Safety Report 25400520 (Version 1)
Quarter: 2025Q2

REPORT INFORMATION
  Report Type: Spontaneous
  Country: US (occurrence: US)
  Receive Date: 20250605
  Receipt Date: 20250605
  Transmission Date: 20250717
  Serious: No
  Sender: HANGZHOU MINSHENG BINJIANG PHARMA
  Company Number: US-Hangzhou Minsheng Binjiang Pharmaceutical Co., Ltd.-2178089

PATIENT
  Age: 76 Year
  Sex: Male

DRUGS (7)
  1. ALENDRONATE SODIUM [Suspect]
     Active Substance: ALENDRONATE SODIUM
     Indication: Osteoporosis
     Dates: start: 20240831
  2. DOXYCYCLINE [Concomitant]
     Active Substance: DOXYCYCLINE
     Dates: start: 20240501
  3. ESBRIET [Concomitant]
     Active Substance: PIRFENIDONE
  4. FINASTERIDE [Concomitant]
     Active Substance: FINASTERIDE
  5. DUPIXENT [Concomitant]
     Active Substance: DUPILUMAB
  6. ROSUVASTATIN [Concomitant]
     Active Substance: ROSUVASTATIN
  7. CARVEDILOL [Concomitant]
     Active Substance: CARVEDILOL

REACTIONS (1)
  - Rash [Recovering/Resolving]

NARRATIVE: CASE EVENT DATE: 20240831
